FAERS Safety Report 16264054 (Version 1)
Quarter: 2019Q2

REPORT INFORMATION
  Report Type: Report from Study
  Country: None (occurrence: AR)
  Receive Date: 20190502
  Receipt Date: 20190502
  Transmission Date: 20190711
  Serious: Yes (Other)
  Sender: FDA-Public Use
  Company Number: AR-ABBVIE-19K-007-2764670-00

PATIENT
  Age: 70 Year
  Sex: Female

DRUGS (1)
  1. HUMIRA [Suspect]
     Active Substance: ADALIMUMAB
     Indication: RHEUMATOID ARTHRITIS
     Route: 058
     Dates: start: 20160719

REACTIONS (9)
  - Tendon injury [Unknown]
  - Pain [Not Recovered/Not Resolved]
  - Gastric disorder [Recovered/Resolved]
  - Temperature intolerance [Unknown]
  - Humidity intolerance [Unknown]
  - Rheumatoid arthritis [Not Recovered/Not Resolved]
  - Grip strength decreased [Unknown]
  - Musculoskeletal pain [Unknown]
  - Spinal pain [Unknown]

NARRATIVE: CASE EVENT DATE: 201704
